FAERS Safety Report 8588994-4 (Version None)
Quarter: 2012Q3

REPORT INFORMATION
  Report Type: 
  Country: None (occurrence: None)
  Receive Date: 20120813
  Receipt Date: 20120801
  Transmission Date: 20120928
  Serious: No
  Sender: FDA-Public Use
  Company Number: US-BAYER-2012-078773

PATIENT
  Sex: Female
  Weight: 68.027 kg

DRUGS (2)
  1. ALEVE (CAPLET) [Suspect]
     Indication: ARTHRITIS
  2. ALEVE (CAPLET) [Suspect]
     Indication: HEADACHE
     Dosage: 2 DF, PRN
     Route: 048
     Dates: start: 20120701, end: 20120731

REACTIONS (2)
  - HEADACHE [None]
  - ARTHRITIS [None]
